FAERS Safety Report 16775568 (Version 4)
Quarter: 2019Q4

REPORT INFORMATION
  Report Type: Report from Study
  Country: US (occurrence: US)
  Receive Date: 20190905
  Receipt Date: 20191210
  Transmission Date: 20200122
  Serious: Yes (Other)
  Sender: FDA-Public Use
  Company Number: US-TAKEDA-2019TUS050907

PATIENT
  Sex: Female
  Weight: 51.25 kg

DRUGS (1)
  1. PONATINIB [Suspect]
     Active Substance: PONATINIB
     Indication: CHRONIC MYELOID LEUKAEMIA
     Dosage: 30 MILLIGRAM, QD
     Route: 048
     Dates: start: 201908

REACTIONS (5)
  - Pigmentation disorder [Recovering/Resolving]
  - Cardiac disorder [Unknown]
  - Bone pain [Unknown]
  - Dry eye [Unknown]
  - Blood pressure increased [Unknown]
